FAERS Safety Report 6880579-0 (Version None)
Quarter: 2010Q3

REPORT INFORMATION
  Report Type: 
  Country: None (occurrence: None)
  Receive Date: 20100727
  Receipt Date: 20091007
  Transmission Date: 20110219
  Serious: No
  Sender: FDA-Public Use
  Company Number: A0788629A

PATIENT
  Age: 68 Year
  Sex: Male

DRUGS (18)
  1. ZANTAC [Suspect]
     Indication: PRODUCT USED FOR UNKNOWN INDICATION
  2. UNKNOWN [Suspect]
     Indication: IDIOPATHIC PULMONARY FIBROSIS
     Dosage: 600MG PER DAY
     Route: 048
     Dates: start: 20090306
  3. COTRIM [Suspect]
     Indication: PRODUCT USED FOR UNKNOWN INDICATION
  4. NEORAL [Suspect]
     Indication: PRODUCT USED FOR UNKNOWN INDICATION
  5. SIGMART [Suspect]
     Indication: PRODUCT USED FOR UNKNOWN INDICATION
  6. ADETPHOS [Suspect]
     Indication: PRODUCT USED FOR UNKNOWN INDICATION
  7. FOLIAMIN [Suspect]
     Indication: PRODUCT USED FOR UNKNOWN INDICATION
  8. ASPIRIN [Suspect]
     Indication: PRODUCT USED FOR UNKNOWN INDICATION
  9. BLOPRESS [Suspect]
     Indication: PRODUCT USED FOR UNKNOWN INDICATION
  10. MEVALOTIN [Suspect]
     Indication: PRODUCT USED FOR UNKNOWN INDICATION
  11. HUSTAZOL [Suspect]
     Indication: PRODUCT USED FOR UNKNOWN INDICATION
  12. MUCODYNE [Suspect]
     Indication: PRODUCT USED FOR UNKNOWN INDICATION
  13. GASTER D [Suspect]
     Indication: PRODUCT USED FOR UNKNOWN INDICATION
  14. MAGMITT [Suspect]
     Indication: PRODUCT USED FOR UNKNOWN INDICATION
  15. FOSAMAC [Suspect]
     Indication: PRODUCT USED FOR UNKNOWN INDICATION
  16. ISCOTIN [Suspect]
     Indication: PRODUCT USED FOR UNKNOWN INDICATION
  17. PREDONINE [Concomitant]
  18. OXYGEN [Concomitant]
     Dates: start: 20080325

REACTIONS (5)
  - BLOOD ALKALINE PHOSPHATASE DECREASED [None]
  - C-REACTIVE PROTEIN INCREASED [None]
  - DYSPNOEA [None]
  - LUNG DISORDER [None]
  - PYREXIA [None]
